FAERS Safety Report 8225859-1 (Version None)
Quarter: 2012Q1

REPORT INFORMATION
  Report Type: 
  Country: None (occurrence: None)
  Receive Date: 20120321
  Receipt Date: 20120315
  Transmission Date: 20120608
  Serious: Yes (Hospitalization, Disabling, Other)
  Sender: FDA-Public Use
  Company Number: US-ABBOTT-11P-163-0872232-00

PATIENT
  Sex: Female
  Weight: 72.64 kg

DRUGS (6)
  1. CALCIUM CARBONATE [Concomitant]
     Indication: MINERAL SUPPLEMENTATION
  2. DILANTIN [Suspect]
     Indication: PRODUCT USED FOR UNKNOWN INDICATION
  3. POTASSIUM [Concomitant]
     Indication: MINERAL SUPPLEMENTATION
  4. UNKNOWN STATIN MEDICATION [Concomitant]
     Indication: BLOOD CHOLESTEROL INCREASED
  5. HUMIRA [Suspect]
     Indication: RHEUMATOID ARTHRITIS
     Dates: end: 20061001
  6. UNKNOWN BLOOD PRESSURE MED [Concomitant]
     Indication: HYPERTENSION

REACTIONS (18)
  - CONFUSIONAL STATE [None]
  - MOVEMENT DISORDER [None]
  - APALLIC SYNDROME [None]
  - ACTIVITIES OF DAILY LIVING IMPAIRED [None]
  - MOBILITY DECREASED [None]
  - HEADACHE [None]
  - ABNORMAL BEHAVIOUR [None]
  - ARTHRALGIA [None]
  - SUBDURAL EMPYEMA [None]
  - SINUSITIS [None]
  - AMNESIA [None]
  - RHEUMATOID ARTHRITIS [None]
  - UNEVALUABLE EVENT [None]
  - WEIGHT INCREASED [None]
  - ABASIA [None]
  - BACK PAIN [None]
  - APHASIA [None]
  - IMPAIRED SELF-CARE [None]
